FAERS Safety Report 19292866 (Version 1)
Quarter: 2021Q2

REPORT INFORMATION
  Report Type: Spontaneous
  Country: US (occurrence: US)
  Receive Date: 20210524
  Receipt Date: 20210524
  Transmission Date: 20210717
  Serious: No
  Sender: FDA-Public Use
  Company Number: US-SA-2020SA217027

PATIENT
  Age: 14 Year
  Sex: Male

DRUGS (1)
  1. DUPIXENT [Suspect]
     Active Substance: DUPILUMAB
     Dosage: 200 MG, OTHER
     Route: 058
     Dates: start: 202101, end: 2021

REACTIONS (2)
  - Unevaluable event [Unknown]
  - Product dose omission issue [Unknown]

NARRATIVE: CASE EVENT DATE: 2021
